FAERS Safety Report 12728521 (Version 1)
Quarter: 2016Q3

REPORT INFORMATION
  Report Type: Spontaneous
  Country: US (occurrence: US)
  Receive Date: 20160907
  Receipt Date: 20160907
  Transmission Date: 20161109
  Serious: Yes (Other)
  Sender: FDA-Public Use
  Company Number: None

PATIENT
  Age: 46 Year
  Sex: Male
  Weight: 99 kg

DRUGS (8)
  1. GENERIC OXYCODONE-ACETAMINOPHEN 10 MG RHODES PHARMACEUTICALS [Suspect]
     Active Substance: ACETAMINOPHEN\OXYCODONE HYDROCHLORIDE
     Indication: OSTEOARTHRITIS
     Dosage: OTHER STRENGTH:;OTHER DOSE:1 TABLET;OTHER FREQUENCY:;OTHER ROUTE:
     Route: 048
     Dates: start: 20160901
  2. MELOXICAM. [Concomitant]
     Active Substance: MELOXICAM
  3. XANAX [Concomitant]
     Active Substance: ALPRAZOLAM
  4. SIMVASTATIN. [Concomitant]
     Active Substance: SIMVASTATIN
  5. GENERIC OXYCODONE-ACETAMINOPHEN 10 MG RHODES PHARMACEUTICALS [Suspect]
     Active Substance: ACETAMINOPHEN\OXYCODONE HYDROCHLORIDE
     Indication: PAIN
     Dosage: OTHER STRENGTH:;OTHER DOSE:1 TABLET;OTHER FREQUENCY:;OTHER ROUTE:
     Route: 048
     Dates: start: 20160901
  6. GENERIC OXYCODONE-ACETAMINOPHEN 10 MG RHODES PHARMACEUTICALS [Suspect]
     Active Substance: ACETAMINOPHEN\OXYCODONE HYDROCHLORIDE
     Indication: INTERVERTEBRAL DISC DEGENERATION
     Dosage: OTHER STRENGTH:;OTHER DOSE:1 TABLET;OTHER FREQUENCY:;OTHER ROUTE:
     Route: 048
     Dates: start: 20160901
  7. OXYCODONE AND ACETAMINOPHEN [Concomitant]
     Active Substance: ACETAMINOPHEN\OXYCODONE HYDROCHLORIDE
  8. FLEXERIL [Concomitant]
     Active Substance: CYCLOBENZAPRINE HYDROCHLORIDE

REACTIONS (2)
  - Drug ineffective [None]
  - Product substitution issue [None]

NARRATIVE: CASE EVENT DATE: 20160901
